FAERS Safety Report 13494497 (Version 2)
Quarter: 2017Q2

REPORT INFORMATION
  Report Type: Spontaneous
  Country: US (occurrence: US)
  Receive Date: 20170428
  Receipt Date: 20170516
  Transmission Date: 20170830
  Serious: Yes (Death)
  Sender: FDA-Public Use
  Company Number: US-ACCORD-050870

PATIENT
  Age: 50 Year
  Sex: Male

DRUGS (7)
  1. VALGANCICLOVIR/VALGANCICLOVIR HYDROCHLORIDE [Concomitant]
     Indication: PROPHYLAXIS
  2. PREDNISONE. [Concomitant]
     Active Substance: PREDNISONE
     Indication: RENAL TRANSPLANT
     Dosage: ON POD 3 REDUCE TO 60 MG ON POD 4, 40 MG ON POD 5, 30 MG ON POD 6, AND TO 20 MG ONCE A DAY POD 7
  3. METHYLPREDNISOLONE. [Concomitant]
     Active Substance: METHYLPREDNISOLONE
     Indication: RENAL TRANSPLANT
  4. TACROLIMUS. [Suspect]
     Active Substance: TACROLIMUS
     Indication: RENAL TRANSPLANT
  5. BASILIXIMAB [Suspect]
     Active Substance: BASILIXIMAB
     Indication: PRODUCT USED FOR UNKNOWN INDICATION
     Dosage: ON POD 4
  6. MYCOPHENOLIC ACID. [Suspect]
     Active Substance: MYCOPHENOLIC ACID
     Indication: RENAL TRANSPLANT
  7. SULFAMETHOXAZOLE/TRIMETHOPRIM [Concomitant]
     Indication: PROPHYLAXIS
     Dosage: 800/160 MG

REACTIONS (5)
  - Respiratory failure [Fatal]
  - Sepsis [Fatal]
  - Pulmonary alveolar haemorrhage [Fatal]
  - Acute respiratory distress syndrome [Fatal]
  - Pulmonary fibrosis [Fatal]
